FAERS Safety Report 25341259 (Version 1)
Quarter: 2025Q2

REPORT INFORMATION
  Report Type: Report from Study
  Country: US (occurrence: US)
  Receive Date: 20250521
  Receipt Date: 20250521
  Transmission Date: 20250716
  Serious: Yes (Other)
  Sender: ALEXION PHARMACEUTICALS
  Company Number: US-AstraZeneca-CH-00873577A

PATIENT
  Age: 46 Year

DRUGS (1)
  1. OLAPARIB [Suspect]
     Active Substance: OLAPARIB
     Route: 065

REACTIONS (2)
  - Neoplasm malignant [Unknown]
  - Hot flush [Unknown]
